FAERS Safety Report 4594978-3 (Version None)
Quarter: 2005Q1

REPORT INFORMATION
  Report Type: 
  Country: None (occurrence: None)
  Receive Date: 20050224
  Receipt Date: 20030804
  Transmission Date: 20050727
  Serious: Yes (Other)
  Sender: FDA-Public Use
  Company Number: GXKR2003GB00639

PATIENT
  Age: 64 Year
  Sex: 0

DRUGS (6)
  1. TRIMETHOPRIM [Suspect]
  2. LITHIUM CARBONATE [Suspect]
     Dosage: 600 MG, QD, ORAL
     Route: 048
  3. METFORMIN HCL [Concomitant]
  4. PERINDOPRIL (PERINDOPRIL) [Concomitant]
  5. REPAGLINIDE (REPAGLINIDE) [Concomitant]
  6. LITHIUM CARBONATE [Concomitant]

REACTIONS (3)
  - DRUG INTERACTION [None]
  - DRUG LEVEL INCREASED [None]
  - DRUG TOXICITY [None]
